FAERS Safety Report 9285774 (Version 1)
Quarter: 2013Q2

REPORT INFORMATION
  Report Type: Spontaneous
  Country: DE (occurrence: DE)
  Receive Date: 20130513
  Receipt Date: 20130513
  Transmission Date: 20140414
  Serious: Yes (Other)
  Sender: FDA-Public Use
  Company Number: DE-PFIZER INC-2013143283

PATIENT
  Age: 68 Year
  Sex: Male
  Weight: 110 kg

DRUGS (2)
  1. TAZOBAC [Suspect]
     Indication: UROSEPSIS
     Dosage: 4.5 G /DAILY
     Route: 042
     Dates: start: 20130325, end: 20130330
  2. TAZOBAC [Suspect]
     Indication: PNEUMONIA
     Dosage: 4.5 G / DAY
     Route: 042
     Dates: start: 20130413, end: 20130413

REACTIONS (1)
  - Haemolysis [Not Recovered/Not Resolved]
